FAERS Safety Report 9866525 (Version 5)
Quarter: 2014Q2

REPORT INFORMATION
  Report Type: Report from Study
  Country: AU (occurrence: AU)
  Receive Date: 20140204
  Receipt Date: 20140618
  Transmission Date: 20141212
  Serious: Yes (Hospitalization)
  Sender: FDA-Public Use
  Company Number: AU-BIOGENIDEC-2013BI118683

PATIENT
  Age: 71 Year
  Sex: Female

DRUGS (5)
  1. TECFIDERA [Suspect]
     Indication: MULTIPLE SCLEROSIS
     Route: 048
     Dates: start: 20131111
  2. TECFIDERA [Suspect]
     Indication: MULTIPLE SCLEROSIS
     Route: 048
     Dates: start: 201405
  3. TYSABRI [Concomitant]
     Dates: start: 20080917
  4. GABAPENTIN [Concomitant]
     Indication: SENSORY DISTURBANCE
     Route: 048
     Dates: start: 20121030
  5. OXYCONTIN [Concomitant]
     Indication: PAIN
     Route: 048
     Dates: start: 201201

REACTIONS (8)
  - Cholelithiasis [Recovered/Resolved]
  - Lower respiratory tract infection [Unknown]
  - Paraesthesia [Unknown]
  - Limb discomfort [Unknown]
  - Hot flush [Not Recovered/Not Resolved]
  - Abdominal pain [Unknown]
  - Vomiting [Unknown]
  - Chest pain [Recovered/Resolved]
